FAERS Safety Report 20909160 (Version 1)
Quarter: 2022Q2

REPORT INFORMATION
  Report Type: Spontaneous
  Country: FR (occurrence: FR)
  Receive Date: 20220603
  Receipt Date: 20220603
  Transmission Date: 20220721
  Serious: Yes (Other)
  Sender: FDA-Public Use
  Company Number: FR-AFSSAPS-AVNT20220370

PATIENT
  Age: 47 Year
  Sex: Male

DRUGS (7)
  1. ZOLPIDEM [Suspect]
     Active Substance: ZOLPIDEM TARTRATE
     Indication: Product used for unknown indication
     Dosage: UNK (1 IN THE EVENING + OCCASIONAL OVERCONSUMPTION)
     Route: 048
  2. COCAINE [Suspect]
     Active Substance: COCAINE
     Indication: Product used for unknown indication
     Dosage: UNK (2 TIMES/WEEK)
     Route: 045
  3. COCAINE [Suspect]
     Active Substance: COCAINE
     Dosage: UNK (2 TIMES/WEEK)
     Route: 042
  4. DIAMORPHINE [Suspect]
     Active Substance: DIAMORPHINE
     Indication: Product used for unknown indication
     Dosage: UNK (2 TIMES/WEEK)
     Route: 042
  5. ALCOHOL [Suspect]
     Active Substance: ALCOHOL
     Indication: Product used for unknown indication
     Dosage: UNK (4 TO 6 BEERS/D)
     Route: 048
  6. METHADONE [Suspect]
     Active Substance: METHADONE HYDROCHLORIDE
     Indication: Product used for unknown indication
     Dosage: 120 MILLIGRAM, ONCE A DAY
     Route: 048
  7. OXAZEPAM [Suspect]
     Active Substance: OXAZEPAM
     Indication: Product used for unknown indication
     Dosage: UNK (1 CP 3 X/D+ OCCASIONAL OVERCONSUMPTION)
     Route: 048

REACTIONS (2)
  - Substance use disorder [Not Recovered/Not Resolved]
  - Drug use disorder [Not Recovered/Not Resolved]
